FAERS Safety Report 12834796 (Version 9)
Quarter: 2017Q4

REPORT INFORMATION
  Report Type: Spontaneous
  Country: US (occurrence: US)
  Receive Date: 20161010
  Receipt Date: 20171002
  Transmission Date: 20180320
  Serious: Yes (Hospitalization)
  Sender: FDA-Public Use
  Company Number: US-PFIZER INC-2016469328

PATIENT
  Age: 70 Year
  Sex: Female
  Weight: 58 kg

DRUGS (23)
  1. SUTENT [Suspect]
     Active Substance: SUNITINIB MALATE
     Indication: PANCREATIC CARCINOMA METASTATIC
     Dosage: 37.5 MG, CYCLIC (D1-D28 Q 28 DAYS)
     Route: 048
     Dates: start: 20150820
  2. NOVOLIN R [Concomitant]
     Active Substance: INSULIN HUMAN
     Dosage: 8 IU, 1X/DAY
     Route: 051
  3. ONDANSETRON [Concomitant]
     Active Substance: ONDANSETRON
     Indication: NAUSEA
     Dosage: 8 MG, AS NEEDED (PLACE ONE TAB UNDER TONGUE EVERY 8 HOURS AS NEEDED )
     Route: 060
  4. PROTONIX [Concomitant]
     Active Substance: PANTOPRAZOLE SODIUM
     Dosage: 20 MG, 2X/DAY
     Route: 048
  5. SUTENT [Suspect]
     Active Substance: SUNITINIB MALATE
     Dosage: 37.5 MG, CYCLIC (D 1-28Q 28DAYS)
     Route: 048
     Dates: start: 20150820
  6. AIRBORNE [Concomitant]
     Active Substance: HERBALS\MINERALS\VITAMINS
     Dosage: 1 DF, 1X/DAY(333 MG-1.7 MG )
     Route: 048
  7. PREDNISONE. [Concomitant]
     Active Substance: PREDNISONE
     Dosage: TAKE 50 MG (1 TAB) 13 HOURS BEFORE THE SCAN, 7 HOURS BEFORE SCAN, AND 1 HOUR BEFORE THE SCAN
  8. SIMVASTATIN. [Concomitant]
     Active Substance: SIMVASTATIN
     Dosage: 20 MG, 1X/DAY (1 P.O. Q. DAY AT BEDTIME (HS))
     Route: 048
  9. TRAVATAN [Concomitant]
     Active Substance: TRAVOPROST
     Dosage: 2 GTT, 1X/DAY(ONE DROP IN EACH EYE AT HS)
     Route: 047
  10. ZENPEP [Concomitant]
     Active Substance: PANCRELIPASE AMYLASE\PANCRELIPASE LIPASE\PANCRELIPASE PROTEASE
     Dosage: 2 DF, 2X/DAY (20,000-68,000-109,000 UNIT )
  11. SUTENT [Suspect]
     Active Substance: SUNITINIB MALATE
     Indication: CARCINOID TUMOUR
     Dosage: 37.5 MG, CYCLIC (D1-D28 Q 28 DAYS)
     Route: 048
     Dates: start: 20150820
  12. AMLODIPINE [Concomitant]
     Active Substance: AMLODIPINE BESYLATE
     Dosage: 5 MG, 1X/DAY
     Route: 048
  13. VITAMIN D3 [Concomitant]
     Active Substance: CHOLECALCIFEROL
     Dosage: 1000 IU, 1X/DAY
     Route: 048
  14. CALCIUM 600 + D [Concomitant]
     Active Substance: CALCIUM\VITAMIN D
     Dosage: 1500 MG, 2X/DAY
     Route: 048
  15. ONDANSETRON [Concomitant]
     Active Substance: ONDANSETRON
     Indication: VOMITING
  16. HYDROCORTISONE. [Concomitant]
     Active Substance: HYDROCORTISONE
     Dosage: 20 MG, (HALF IN AM AND HALF AT 5PM)
  17. VITAMIN B12 + FOLIC ACID [Concomitant]
     Dosage: 1 DF, 1X/DAY[CYANOCOBALAMIN: 0.5 MG]/ [FOLIC ACID: 1 MG]
     Route: 048
  18. TIMOLOL. [Concomitant]
     Active Substance: TIMOLOL
     Dosage: 4 GTT, DAILY(2 DROPS A DAY IN EACH EYE)
     Route: 047
  19. WOMEN^S MULTIVITE [Concomitant]
     Dosage: 1 DF, 1X/DAY [18 MG-0.4 MG ]
     Route: 048
  20. FLUTICASONE PROPIONATE. [Concomitant]
     Active Substance: FLUTICASONE PROPIONATE
     Dosage: UNK, DAILY (2 SPRAY IN EACH NOSTRIL/FLUTICASONE 50 MCG)
     Route: 045
  21. K-SOL [Concomitant]
     Active Substance: POTASSIUM CHLORIDE
     Dosage: 20 MEQ/15 ML, 3X/DAY
     Route: 048
  22. NOVOLIN N [Concomitant]
     Active Substance: INSULIN HUMAN
     Dosage: 35 IU, 1X/DAY
     Route: 058
  23. VITAMIN C [Concomitant]
     Active Substance: ASCORBIC ACID
     Dosage: 500 MG, 1X/DAY
     Route: 048

REACTIONS (12)
  - Drug dose omission [Unknown]
  - Vomiting [Unknown]
  - Blood sodium decreased [Recovered/Resolved]
  - Urinary tract infection [Unknown]
  - Rash [Not Recovered/Not Resolved]
  - Hyperaesthesia [Unknown]
  - Abdominal distension [Unknown]
  - Blood glucose increased [Recovered/Resolved]
  - Adrenal insufficiency [Unknown]
  - Rash generalised [Not Recovered/Not Resolved]
  - Blood potassium increased [Recovered/Resolved]
  - Fatigue [Unknown]

NARRATIVE: CASE EVENT DATE: 20161215
